FAERS Safety Report 11224642 (Version 1)
Quarter: 2015Q2

REPORT INFORMATION
  Report Type: Report from Study
  Country: DE (occurrence: DE)
  Receive Date: 20150629
  Receipt Date: 20150629
  Transmission Date: 20150821
  Serious: Yes (Hospitalization)
  Sender: FDA-Public Use
  Company Number: DE-JNJFOC-20150619982

PATIENT
  Age: 82 Year
  Sex: Male
  Weight: 82 kg

DRUGS (2)
  1. XARELTO [Suspect]
     Active Substance: RIVAROXABAN
     Indication: CEREBROVASCULAR ACCIDENT PROPHYLAXIS
     Route: 048
     Dates: start: 20130105
  2. XARELTO [Suspect]
     Active Substance: RIVAROXABAN
     Indication: ATRIAL FIBRILLATION
     Route: 048
     Dates: start: 20130105

REACTIONS (4)
  - Haemorrhage [Unknown]
  - Laceration [Unknown]
  - Haemorrhage [Unknown]
  - Laceration [Unknown]

NARRATIVE: CASE EVENT DATE: 20150126
